APPROVED DRUG PRODUCT: METHYCLOTHIAZIDE
Active Ingredient: METHYCLOTHIAZIDE
Strength: 5MG
Dosage Form/Route: TABLET;ORAL
Application: A087786 | Product #001
Applicant: IVAX PHARMACEUTICALS INC
Approved: May 18, 1982 | RLD: No | RS: No | Type: DISCN